FAERS Safety Report 17450113 (Version 1)
Quarter: 2020Q1

REPORT INFORMATION
  Report Type: Spontaneous
  Country: RU (occurrence: RU)
  Receive Date: 20200224
  Receipt Date: 20200224
  Transmission Date: 20200409
  Serious: Yes (Hospitalization)
  Sender: FDA-Public Use
  Company Number: RU-ABBVIE-20P-251-3287944-00

PATIENT
  Sex: Male

DRUGS (3)
  1. KLACID [Suspect]
     Active Substance: CLARITHROMYCIN
     Indication: BODY TEMPERATURE INCREASED
  2. KLACID [Suspect]
     Active Substance: CLARITHROMYCIN
     Indication: COUGH
  3. KLACID [Suspect]
     Active Substance: CLARITHROMYCIN
     Indication: PHARYNGEAL ERYTHEMA
     Route: 048
     Dates: start: 202002

REACTIONS (3)
  - Complicated appendicitis [Unknown]
  - Product complaint [Unknown]
  - Abdominal pain upper [Unknown]

NARRATIVE: CASE EVENT DATE: 202002
